FAERS Safety Report 23070282 (Version 4)
Quarter: 2023Q4

REPORT INFORMATION
  Report Type: Spontaneous
  Country: IN (occurrence: IN)
  Receive Date: 20231016
  Receipt Date: 20231228
  Transmission Date: 20240110
  Serious: Yes (Other)
  Sender: FDA-Public Use
  Company Number: IN-PFIZER INC-PV202300111541

PATIENT
  Age: 72 Year
  Sex: Female

DRUGS (3)
  1. PALBOCICLIB [Suspect]
     Active Substance: PALBOCICLIB
     Dosage: 125 MG, 1X/DAY
     Route: 048
     Dates: start: 202302
  2. FULVESTRANT [Concomitant]
     Active Substance: FULVESTRANT
     Dosage: UNK
     Dates: start: 202304
  3. FULVESTRANT [Concomitant]
     Active Substance: FULVESTRANT
     Dosage: 250 MG IM ON EACH BUTTOCK
     Route: 030

REACTIONS (2)
  - Cataract [Unknown]
  - Haemoglobin decreased [Unknown]
